FAERS Safety Report 8565480-9 (Version None)
Quarter: 2012Q3

REPORT INFORMATION
  Report Type: 
  Country: None (occurrence: None)
  Receive Date: 20120803
  Receipt Date: 20120730
  Transmission Date: 20120928
  Serious: Yes (Hospitalization, Other)
  Sender: FDA-Public Use
  Company Number: US-ABBOTT-12P-163-0962029-00

PATIENT
  Sex: Female
  Weight: 95.34 kg

DRUGS (4)
  1. HUMIRA [Suspect]
     Indication: PSORIASIS
     Route: 058
     Dates: start: 20090101, end: 20110901
  2. DILAUDID [Suspect]
     Indication: SURGERY
  3. HUMIRA [Suspect]
     Indication: PSORIATIC ARTHROPATHY
     Route: 058
     Dates: start: 20120401, end: 20120622
  4. DILAUDID [Suspect]
     Indication: PROPHYLAXIS
     Dosage: ADMINISTERED VIA PCA PUMP IN HOSPITAL
     Route: 042
     Dates: start: 20120201, end: 20120201

REACTIONS (7)
  - PRURITUS GENERALISED [None]
  - MEDICAL DEVICE REMOVAL [None]
  - GASTRECTOMY [None]
  - DRUG HYPERSENSITIVITY [None]
  - RASH [None]
  - DRUG INEFFECTIVE [None]
  - ANGIOEDEMA [None]
